FAERS Safety Report 8276110-8 (Version None)
Quarter: 2012Q2

REPORT INFORMATION
  Report Type: 
  Country: None (occurrence: None)
  Receive Date: 20120412
  Receipt Date: 20120409
  Transmission Date: 20120825
  Serious: Yes (Death, Hospitalization)
  Sender: FDA-Public Use
  Company Number: SE-SANOFI-AVENTIS-2012SA024471

PATIENT
  Age: 60 Year
  Sex: Male

DRUGS (19)
  1. ASPIRIN [Suspect]
     Dates: end: 20110722
  2. SPIRONOLACTONE [Concomitant]
     Dates: start: 20110713
  3. NOVORAPID [Suspect]
     Dates: start: 20110711, end: 20110719
  4. OXYCONTIN [Concomitant]
     Dates: start: 20110711
  5. IMPORTAL [Concomitant]
     Dates: start: 20110726
  6. METOCLOPRAMIDE [Concomitant]
     Dates: start: 20110812, end: 20110818
  7. INSULATARD NPH HUMAN [Suspect]
     Indication: DIABETES MELLITUS
     Dates: start: 20110718
  8. PLAVIX [Suspect]
  9. INVESTIGATIONAL DRUG [Suspect]
     Indication: TYPE 2 DIABETES MELLITUS
     Dates: start: 20110414
  10. METFORMIN HCL [Suspect]
     Indication: TYPE 2 DIABETES MELLITUS
     Dates: end: 20110711
  11. PROPRANOLOL [Concomitant]
     Dates: start: 20110811, end: 20110827
  12. NOSKAPIN [Concomitant]
     Dates: start: 20110813, end: 20110818
  13. LACTULOSE [Suspect]
     Dates: start: 20110720, end: 20110725
  14. SODIUM PICOSULFATE [Suspect]
     Dates: start: 20110712, end: 20110725
  15. ASPIRIN [Concomitant]
  16. PLACEBO [Suspect]
     Indication: TYPE 2 DIABETES MELLITUS
  17. DALTEPARIN SODIUM [Suspect]
     Dates: start: 20110711
  18. FUROSEMIDE [Concomitant]
     Dates: start: 20110711
  19. OMEPRAZOLE [Concomitant]
     Dates: start: 20110716

REACTIONS (8)
  - SUDDEN CARDIAC DEATH [None]
  - ASCITES [None]
  - NAUSEA [None]
  - INGUINAL HERNIA [None]
  - PORTAL VEIN THROMBOSIS [None]
  - PULMONARY EMBOLISM [None]
  - CONSTIPATION [None]
  - HAEMATURIA [None]
